FAERS Safety Report 6465590-6 (Version None)
Quarter: 2009Q4

REPORT INFORMATION
  Report Type: 
  Country: None (occurrence: None)
  Receive Date: 20091201
  Receipt Date: 20091117
  Transmission Date: 20100525
  Serious: Yes (Hospitalization)
  Sender: FDA-Public Use
  Company Number: GB-PFIZER INC-2009298596

PATIENT
  Age: 58 Year
  Sex: Male
  Weight: 88 kg

DRUGS (4)
  1. PEGVISOMANT [Suspect]
     Indication: ACROMEGALY
     Dosage: UNK
  2. SANDOSTATIN LAR [Suspect]
     Indication: ACROMEGALY
     Dosage: 27 MG, MONTHLY
     Route: 030
     Dates: start: 19980320, end: 19980701
  3. HYDROCORTISONE [Concomitant]
     Indication: ACROMEGALY
     Dosage: UNK
     Route: 048
     Dates: start: 19911121
  4. TESTOSTERONE [Concomitant]
     Dosage: UNK

REACTIONS (6)
  - CHOLECYSTITIS ACUTE [None]
  - CHOLELITHIASIS [None]
  - DIARRHOEA [None]
  - ERUCTATION [None]
  - INSULIN-LIKE GROWTH FACTOR INCREASED [None]
  - NAUSEA [None]
